FAERS Safety Report 23463782 (Version 1)
Quarter: 2024Q1

REPORT INFORMATION
  Report Type: Report from Study
  Country: US (occurrence: US)
  Receive Date: 20240201
  Receipt Date: 20240201
  Transmission Date: 20240409
  Serious: Yes (Hospitalization)
  Sender: FDA-Public Use
  Company Number: US-ABBVIE-5608728

PATIENT
  Age: 62 Year
  Sex: Female

DRUGS (2)
  1. SKYRIZI [Suspect]
     Active Substance: RISANKIZUMAB-RZAA
     Indication: Psoriasis
     Route: 042
     Dates: start: 20210125
  2. SKYRIZI [Suspect]
     Active Substance: RISANKIZUMAB-RZAA
     Indication: Psoriasis
     Route: 042
     Dates: start: 202301

REACTIONS (5)
  - Haemorrhage [Unknown]
  - Muscle spasms [Unknown]
  - Defaecation urgency [Unknown]
  - Mucous stools [Unknown]
  - Haematochezia [Unknown]

NARRATIVE: CASE EVENT DATE: 20221105
